FAERS Safety Report 24405595 (Version 1)
Quarter: 2024Q4

REPORT INFORMATION
  Report Type: Spontaneous
  Country: US (occurrence: US)
  Receive Date: 20241007
  Receipt Date: 20241007
  Transmission Date: 20250115
  Serious: Yes (Hospitalization, Other)
  Sender: INCYTE
  Company Number: US-INCYTE CORPORATION-2024IN010503

PATIENT

DRUGS (1)
  1. JAKAFI [Suspect]
     Active Substance: RUXOLITINIB
     Indication: Non-Hodgkin^s lymphoma
     Dosage: 20 MILLIGRAM, BID
     Route: 048

REACTIONS (2)
  - Non-Hodgkin^s lymphoma [Unknown]
  - Off label use [Unknown]
